FAERS Safety Report 4902564-8 (Version None)
Quarter: 2006Q1

REPORT INFORMATION
  Report Type: 
  Country: None (occurrence: None)
  Receive Date: 20060202
  Receipt Date: 20060120
  Transmission Date: 20060701
  Serious: Yes (Hospitalization)
  Sender: FDA-Public Use
  Company Number: 2006011257

PATIENT
  Sex: Female
  Weight: 59 kg

DRUGS (8)
  1. EPIRUBICIN [Suspect]
     Indication: OESOPHAGEAL ADENOCARCINOMA
     Dates: start: 20051109, end: 20051201
  2. FLUOROURACIL [Suspect]
     Indication: OESOPHAGEAL ADENOCARCINOMA
     Dosage: INTRAVENOUS
     Route: 042
     Dates: start: 20051130, end: 20051202
  3. CISPLATIN [Suspect]
     Indication: OESOPHAGEAL ADENOCARCINOMA
     Dosage: INTRAVENOUS
     Route: 042
     Dates: start: 20051129, end: 20051201
  4. MST CONTINUS ^ASTA MEDICA^ (MORPHINE SULFATE) [Concomitant]
  5. MORPHINE [Concomitant]
  6. MOTILIUM [Concomitant]
  7. DEXAMETHASONE [Concomitant]
  8. TEMESTA (LORAZEPAM) [Concomitant]

REACTIONS (10)
  - ACCIDENTAL OVERDOSE [None]
  - AGRANULOCYTOSIS [None]
  - ANAEMIA [None]
  - ASTHENIA [None]
  - HYPOKALAEMIA [None]
  - INCORRECT DRUG ADMINISTRATION RATE [None]
  - LEUKOPENIA [None]
  - OEDEMA PERIPHERAL [None]
  - THROMBOCYTOPENIA [None]
  - VOMITING [None]
